FAERS Safety Report 22625211 (Version 1)
Quarter: 2023Q2

REPORT INFORMATION
  Report Type: Report from Study
  Country: US (occurrence: US)
  Receive Date: 20230621
  Receipt Date: 20230621
  Transmission Date: 20230722
  Serious: Yes (Other)
  Sender: FDA-Public Use
  Company Number: US-ABBVIE-2314860US

PATIENT
  Age: 71 Year
  Sex: Female
  Weight: 57.6 kg

DRUGS (8)
  1. ARMOUR THYROID [Suspect]
     Active Substance: THYROID, PORCINE
     Indication: Thyroid disorder
     Dosage: FORM STRENGTH: 15 MILLIGRAM. FREQUENCY TEXT: 75MG (60MG+15MG) 5 DAYS A WEEK
     Route: 048
     Dates: start: 2011
  2. ARMOUR THYROID [Suspect]
     Active Substance: THYROID, PORCINE
     Indication: Thyroid disorder
     Dosage: FORM STRENGTH: 60 MILLIGRAM FREQUENCY TEXT: TWICE A WEEK ON MONDAYS AND FRIDAYS
     Route: 048
  3. ARMOUR THYROID [Suspect]
     Active Substance: THYROID, PORCINE
     Indication: Thyroid disorder
     Dosage: FORM STRENGTH: 60 MILLIGRAM. FREQUENCY TEXT: 75MG (60MG+15MG) 5 DAYS A WEEK
     Route: 048
     Dates: start: 2011
  4. VITAMIN D [Concomitant]
     Active Substance: VITAMIN D NOS
     Indication: Vitamin supplementation
  5. MAGNESIUM [Concomitant]
     Active Substance: MAGNESIUM
     Indication: Mineral supplementation
  6. ZINC [Concomitant]
     Active Substance: ZINC
     Indication: Mineral supplementation
  7. BIOTIN [Concomitant]
     Active Substance: BIOTIN
     Indication: Vitamin supplementation
  8. VITAMIN C [Concomitant]
     Active Substance: ASCORBIC ACID
     Indication: Vitamin supplementation

REACTIONS (8)
  - Ankle fracture [Recovering/Resolving]
  - Dizziness [Recovered/Resolved]
  - Fall [Unknown]
  - Arthralgia [Recovering/Resolving]
  - Joint swelling [Recovering/Resolving]
  - Vertigo [Recovered/Resolved]
  - Blood pressure decreased [Recovered/Resolved]
  - Ligament sprain [Unknown]

NARRATIVE: CASE EVENT DATE: 20230217
